FAERS Safety Report 7011024-2 (Version None)
Quarter: 2010Q3

REPORT INFORMATION
  Report Type: 
  Country: None (occurrence: None)
  Receive Date: 20100923
  Receipt Date: 20081121
  Transmission Date: 20110219
  Serious: Yes (Other)
  Sender: FDA-Public Use
  Company Number: US-WYE-H06972708

PATIENT
  Sex: Male

DRUGS (1)
  1. ZOSYN [Suspect]
     Dosage: UNKNOWN

REACTIONS (3)
  - HAEMORRHAGE [None]
  - PYREXIA [None]
  - THROMBOCYTOPENIA [None]
